FAERS Safety Report 5179755-7 (Version None)
Quarter: 2006Q4

REPORT INFORMATION
  Report Type: 
  Country: None (occurrence: None)
  Receive Date: 20061211
  Receipt Date: 20061128
  Transmission Date: 20070319
  Serious: Yes (Other)
  Sender: FDA-Public Use
  Company Number: 2006134878

PATIENT
  Age: 62 Year
  Sex: Male
  Weight: 56 kg

DRUGS (2)
  1. LYRICA [Suspect]
     Indication: DYSAESTHESIA
     Dosage: 600 MG (300 MG, 2 IN 1 D), ORAL
     Route: 048
     Dates: start: 20061015
  2. LYRICA [Suspect]
     Indication: POLYNEUROPATHY
     Dosage: 600 MG (300 MG, 2 IN 1 D), ORAL
     Route: 048
     Dates: start: 20061015

REACTIONS (19)
  - COORDINATION ABNORMAL [None]
  - DIARRHOEA [None]
  - DRUG INEFFECTIVE [None]
  - DRUG WITHDRAWAL SYNDROME [None]
  - DRY MOUTH [None]
  - DYSAESTHESIA [None]
  - DYSARTHRIA [None]
  - DYSGRAPHIA [None]
  - DYSURIA [None]
  - FEELING DRUNK [None]
  - GAIT DISTURBANCE [None]
  - INSOMNIA [None]
  - MOTOR DYSFUNCTION [None]
  - MYALGIA [None]
  - NAUSEA [None]
  - NERVOUS SYSTEM DISORDER [None]
  - NERVOUSNESS [None]
  - POLLAKIURIA [None]
  - POLYNEUROPATHY [None]
